FAERS Safety Report 9753031 (Version 3)
Quarter: 2013Q4

REPORT INFORMATION
  Report Type: Report from Study
  Country: KR (occurrence: KR)
  Receive Date: 20131213
  Receipt Date: 20131219
  Transmission Date: 20140711
  Serious: Yes (Death, Hospitalization)
  Sender: FDA-Public Use
  Company Number: KR-ROCHE-1311498

PATIENT
  Age: 58 Year
  Sex: Male
  Weight: 66.2 kg

DRUGS (23)
  1. TRASTUZUMAB EMTANSINE [Suspect]
     Indication: GASTRIC CANCER
     Dosage: MOST RECENT DOSE PRIOR TO THE SAE WAS 20/NOV/2013
     Route: 042
     Dates: start: 20130724
  2. TARGIN [Concomitant]
     Indication: FATIGUE
     Route: 065
     Dates: start: 20120430, end: 20131203
  3. PANBURON [Concomitant]
     Indication: DYSPEPSIA
     Route: 065
     Dates: start: 20120104, end: 20131127
  4. MAGNESIUM OXIDE [Concomitant]
     Indication: CONSTIPATION
     Route: 065
     Dates: start: 20120601, end: 20131127
  5. MAGNESIUM OXIDE [Concomitant]
     Route: 065
     Dates: start: 20131129, end: 20131203
  6. PENIRAMIN [Concomitant]
     Indication: INFUSION RELATED REACTION
     Route: 065
     Dates: start: 20130724, end: 20131120
  7. URSA [Concomitant]
     Route: 065
     Dates: start: 20130821, end: 20131127
  8. URSA [Concomitant]
     Route: 065
     Dates: start: 20131129, end: 20131203
  9. MEVALOTIN [Concomitant]
     Indication: BLOOD CHOLESTEROL INCREASED
     Route: 065
     Dates: start: 20131002, end: 20131030
  10. MEVALOTIN [Concomitant]
     Route: 065
     Dates: start: 20131031, end: 20131127
  11. TRANEXAMIC ACID [Concomitant]
     Indication: MOUTH HAEMORRHAGE
     Route: 065
     Dates: start: 20131113, end: 20131127
  12. TRANEXAMIC ACID [Concomitant]
     Route: 065
     Dates: start: 20131128, end: 20131204
  13. PERAMIFLU [Concomitant]
     Indication: INFLUENZA
     Route: 065
     Dates: start: 20131127, end: 20131128
  14. HEXAMEDINE [Concomitant]
     Indication: MOUTH HAEMORRHAGE
     Route: 065
     Dates: start: 20131120, end: 20131127
  15. SEPTRIN [Concomitant]
     Indication: INFECTION
     Route: 065
     Dates: start: 20131129, end: 20131203
  16. ZITHROMAX [Concomitant]
     Indication: INFECTION
     Route: 065
     Dates: start: 20131129, end: 20131201
  17. MEROPEN [Concomitant]
     Indication: INFECTION
     Route: 065
     Dates: start: 20131205, end: 20131205
  18. MORPHINE HCL [Concomitant]
     Indication: HEADACHE
     Route: 065
     Dates: start: 20131204, end: 20131205
  19. ZYPREXA [Concomitant]
     Indication: ANXIETY
     Route: 065
     Dates: start: 20131204, end: 20131204
  20. PHOSTEN [Concomitant]
     Indication: HYPOPHOSPHATAEMIA
     Route: 065
     Dates: start: 20131201, end: 20131203
  21. TRIDOL (TRAMADOL HYDROCHLORIDE) [Concomitant]
     Indication: HEADACHE
     Route: 065
     Dates: start: 20131202, end: 20131202
  22. ZANTAC [Concomitant]
     Indication: GASTRITIS
     Route: 065
     Dates: start: 20131129, end: 20131203
  23. STILNOX [Concomitant]
     Indication: INSOMNIA
     Route: 065
     Dates: start: 20131202, end: 20131202

REACTIONS (1)
  - Pulmonary alveolar haemorrhage [Fatal]
